FAERS Safety Report 8738472 (Version 10)
Quarter: 2014Q4

REPORT INFORMATION
  Report Type: Spontaneous
  Country: US (occurrence: US)
  Receive Date: 20120823
  Receipt Date: 20141103
  Transmission Date: 20150529
  Serious: Yes (Hospitalization, Disabling, Other)
  Sender: FDA-Public Use
  Company Number: US-009507513-1208USA005812

PATIENT
  Sex: Female
  Weight: 60.77 kg

DRUGS (2)
  1. FOSAMAX [Suspect]
     Active Substance: ALENDRONATE SODIUM
     Indication: OSTEOPOROSIS
     Dosage: 70 MG, QW
     Route: 048
     Dates: start: 200406, end: 200904
  2. BONIVA [Suspect]
     Active Substance: IBANDRONATE SODIUM
     Indication: OSTEOPOROSIS
     Dosage: 150 MG, QM
     Route: 048
     Dates: start: 200905, end: 201103

REACTIONS (20)
  - Hip fracture [Not Recovered/Not Resolved]
  - Osteoporosis [Not Recovered/Not Resolved]
  - Bone marrow oedema [Unknown]
  - Joint effusion [Unknown]
  - Musculoskeletal discomfort [Unknown]
  - Femur fracture [Unknown]
  - Femur fracture [Not Recovered/Not Resolved]
  - Intramedullary rod insertion [Not Recovered/Not Resolved]
  - Hip arthroplasty [Unknown]
  - Hysterectomy [Unknown]
  - Iron deficiency anaemia [Unknown]
  - Constipation [Not Recovered/Not Resolved]
  - Femur fracture [Unknown]
  - Foot fracture [Unknown]
  - Hand fracture [Unknown]
  - Phlebolith [Unknown]
  - Musculoskeletal discomfort [Unknown]
  - Intramedullary rod insertion [Not Recovered/Not Resolved]
  - Blood parathyroid hormone increased [Unknown]
  - Low turnover osteopathy [Unknown]

NARRATIVE: CASE EVENT DATE: 2007
